FAERS Safety Report 17023172 (Version 2)
Quarter: 2019Q4

REPORT INFORMATION
  Report Type: Spontaneous
  Country: ES (occurrence: ES)
  Receive Date: 20191112
  Receipt Date: 20191119
  Transmission Date: 20200122
  Serious: Yes (Life-Threatening, Hospitalization)
  Sender: FDA-Public Use
  Company Number: ES-009507513-1911ESP002470

PATIENT
  Age: 61 Year
  Sex: Male
  Weight: 62 kg

DRUGS (5)
  1. KEYTRUDA [Suspect]
     Active Substance: PEMBROLIZUMAB
     Indication: NON-SMALL CELL LUNG CANCER
     Dosage: 200 MG, EVERY 3 WEEKS
     Route: 042
     Dates: start: 20190920, end: 20190920
  2. GANCICLOVIR. [Concomitant]
     Active Substance: GANCICLOVIR
     Indication: CYTOMEGALOVIRUS INFECTION
     Dosage: 300 MILLIGRAM, Q12H
     Route: 042
     Dates: start: 20191008, end: 20191016
  3. DEXAMETHASONE. [Concomitant]
     Active Substance: DEXAMETHASONE
     Indication: PNEUMOCYSTIS JIROVECII PNEUMONIA
     Dosage: 1 MILLIGRAM, TOTAL DAILY DOSE: 3 MG
     Route: 048
     Dates: start: 20191007, end: 20191031
  4. SEPTRIN FORTE [Suspect]
     Active Substance: SULFAMETHOXAZOLE\TRIMETHOPRIM
     Indication: PNEUMOCYSTIS JIROVECII PNEUMONIA
     Dosage: 800/160 MILLIGRAM, Q6H; TOTAL DAILY DOSE: 3200/640 MILLIGRAM
     Route: 048
     Dates: start: 20190924, end: 20191017
  5. TAZOCEL [Concomitant]
     Active Substance: PIPERACILLIN SODIUM\TAZOBACTAM SODIUM
     Indication: PYREXIA
     Dosage: 4 GRAM, Q6H
     Route: 042
     Dates: start: 20191008, end: 20191016

REACTIONS (6)
  - Haemosiderosis [Unknown]
  - Cytomegalovirus test positive [Unknown]
  - Hepatitis [Not Recovered/Not Resolved]
  - Pyrexia [Unknown]
  - Pneumocystis jirovecii pneumonia [Unknown]
  - Hepatic steatosis [Unknown]

NARRATIVE: CASE EVENT DATE: 2019
